FAERS Safety Report 16297613 (Version 4)
Quarter: 2019Q3

REPORT INFORMATION
  Report Type: Report from Study
  Country: US (occurrence: JP)
  Receive Date: 20190510
  Receipt Date: 20190902
  Transmission Date: 20191004
  Serious: Yes (Death)
  Sender: FDA-Public Use
  Company Number: US-BEH-2019102197

PATIENT
  Age: 55 Year
  Sex: Male
  Weight: 80 kg

DRUGS (4)
  1. WARFARIN [Concomitant]
     Active Substance: WARFARIN
     Indication: MITRAL VALVE INCOMPETENCE
     Dosage: 4 MG, DAILY
     Route: 048
     Dates: end: 20171224
  2. PROPOFOL. [Concomitant]
     Active Substance: PROPOFOL
     Indication: SEDATION
     Dosage: UNK
     Route: 065
     Dates: start: 20171225, end: 20171225
  3. BERIPLEX P/N [Suspect]
     Active Substance: COAGULATION FACTOR IX HUMAN\COAGULATION FACTOR VII HUMAN\COAGULATION FACTOR X HUMAN\PROTEIN C\PROTEIN S HUMAN\PROTHROMBIN
     Indication: HAEMORRHAGE
     Dosage: 2000 IU, UNK
     Route: 042
     Dates: start: 20171225
  4. BERIPLEX P/N [Suspect]
     Active Substance: COAGULATION FACTOR IX HUMAN\COAGULATION FACTOR VII HUMAN\COAGULATION FACTOR X HUMAN\PROTEIN C\PROTEIN S HUMAN\PROTHROMBIN
     Indication: HAEMORRHAGE
     Dosage: 2000 IU, UNK
     Route: 042
     Dates: start: 20171225

REACTIONS (4)
  - Cerebral haemorrhage [Fatal]
  - Mydriasis [Fatal]
  - Haematoma [Fatal]
  - Brain death [Fatal]

NARRATIVE: CASE EVENT DATE: 20171228
